FAERS Safety Report 9928985 (Version 4)
Quarter: 2015Q2

REPORT INFORMATION
  Report Type: Spontaneous
  Country: US (occurrence: None)
  Receive Date: 20140225
  Receipt Date: 20150408
  Transmission Date: 20150821
  Serious: Yes (Hospitalization, Other)
  Sender: FDA-Public Use
  Company Number: 2195009

PATIENT
  Age: 71 Year
  Sex: Male
  Weight: 82.9 kg

DRUGS (21)
  1. PANTOPRAZOLE [Concomitant]
     Active Substance: PANTOPRAZOLE SODIUM
  2. ZOCOR [Concomitant]
     Active Substance: SIMVASTATIN
  3. OXYCODONE [Concomitant]
     Active Substance: OXYCODONE
  4. GEMCITABINE [Suspect]
     Active Substance: GEMCITABINE\GEMCITABINE HYDROCHLORIDE
     Indication: SARCOMA
     Dosage: 900 MG/M 2 MILLIGRAM(S)/SQ. METER (CYCICAL)
     Route: 041
     Dates: start: 20140115, end: 20140212
  5. AMITRIPTYLINE [Concomitant]
     Active Substance: AMITRIPTYLINE
  6. FLUTICASONE PROPIONATE. [Concomitant]
     Active Substance: FLUTICASONE PROPIONATE
  7. FISH OIL [Concomitant]
     Active Substance: FISH OIL
  8. DOCETAXEL. [Suspect]
     Active Substance: DOCETAXEL
     Indication: SARCOMA
     Dosage: CYCLICAL
     Route: 041
     Dates: start: 20140122, end: 20140212
  9. MULTIVITAMINS [Concomitant]
     Active Substance: VITAMINS
  10. STOMATOLOGICALS, MOUTH PREPARATIONS [Concomitant]
  11. PROCHLORPERAZINE. [Concomitant]
     Active Substance: PROCHLORPERAZINE
  12. FLOMAX [Concomitant]
     Active Substance: TAMSULOSIN HYDROCHLORIDE
  13. THERAGRAN [Concomitant]
     Active Substance: VITAMINS
  14. METFORMIN [Concomitant]
     Active Substance: METFORMIN HYDROCHLORIDE
  15. METOPROLOL [Concomitant]
     Active Substance: METOPROLOL
  16. PRESERVISION AREDS [Concomitant]
  17. OCUVITE [Concomitant]
     Active Substance: VITAMINS
  18. GLICLAZIDE [Concomitant]
     Active Substance: GLICLAZIDE
  19. INVESTIGATIONAL DRUG [Suspect]
     Active Substance: INVESTIGATIONAL PRODUCT
     Indication: SARCOMA
     Dosage: CYCLICAL
     Route: 041
     Dates: start: 20140115, end: 20140122
  20. ATENOLOL. [Concomitant]
     Active Substance: ATENOLOL
  21. ASPIRIN ENTERIC COATED K.P. [Concomitant]
     Active Substance: ASPIRIN

REACTIONS (17)
  - Anaemia [None]
  - Pyrexia [None]
  - Cough [None]
  - Lung infection [None]
  - Corona virus infection [None]
  - Hypoxia [None]
  - Dyspnoea [None]
  - Fatigue [None]
  - Pleural effusion [None]
  - Pneumonia [None]
  - Nausea [None]
  - Chills [None]
  - Hypophagia [None]
  - Gastrointestinal pain [None]
  - Constipation [None]
  - Cytokine release syndrome [None]
  - Coronavirus test positive [None]

NARRATIVE: CASE EVENT DATE: 20140118
